FAERS Safety Report 7137785-X (Version None)
Quarter: 2010Q4

REPORT INFORMATION
  Report Type: 
  Country: None (occurrence: None)
  Receive Date: 20101206
  Receipt Date: 20101204
  Transmission Date: 20110411
  Serious: Yes (Other)
  Sender: FDA-Public Use
  Company Number: PHHY2010TZ18566

PATIENT
  Age: 26 Year
  Sex: Female
  Weight: 46 kg

DRUGS (3)
  1. COARTEM [Suspect]
     Dosage: UNK
     Dates: start: 20090309, end: 20090609
  2. QUININE [Concomitant]
     Dosage: UNK
     Dates: start: 20091021
  3. PARACETAMOL [Concomitant]
     Dosage: UNK
     Dates: start: 20091021

REACTIONS (8)
  - ABORTION SPONTANEOUS [None]
  - ANTEPARTUM HAEMORRHAGE [None]
  - CACHEXIA [None]
  - DRUG EXPOSURE DURING PREGNANCY [None]
  - FOETAL HYPOKINESIA [None]
  - MALAISE [None]
  - STILLBIRTH [None]
  - SWELLING FACE [None]
